FAERS Safety Report 18040692 (Version 2)
Quarter: 2020Q3

REPORT INFORMATION
  Report Type: Spontaneous
  Country: FR (occurrence: FR)
  Receive Date: 20200717
  Receipt Date: 20200828
  Transmission Date: 20201103
  Serious: Yes (Death, Life-Threatening, Other)
  Sender: FDA-Public Use
  Company Number: FR-BAUSCH-BL-2020-016394

PATIENT
  Age: 64 Year
  Sex: Male
  Weight: 80 kg

DRUGS (25)
  1. HYDROCORTISONE SALT NOT SPECIFIED [Suspect]
     Active Substance: HYDROCORTISONE
     Indication: PRODUCT SUBSTITUTION
     Route: 042
     Dates: start: 20200326
  2. KARDEGIC [Suspect]
     Active Substance: ASPIRIN DL-LYSINE
     Indication: MYOCARDIAL ISCHAEMIA
     Route: 048
     Dates: start: 20200326
  3. TAHOR [Suspect]
     Active Substance: ATORVASTATIN CALCIUM
     Indication: PROPHYLAXIS
     Route: 048
     Dates: end: 20200323
  4. AMLOR [Suspect]
     Active Substance: AMLODIPINE BESYLATE
     Indication: HYPERTENSION
     Route: 048
     Dates: end: 20200323
  5. CERTICAN [Suspect]
     Active Substance: EVEROLIMUS
     Indication: TRANSPLANT
     Route: 048
     Dates: end: 20200323
  6. LOPINAVIR/RITONAVIR [Suspect]
     Active Substance: LOPINAVIR\RITONAVIR
     Indication: COVID-19 PNEUMONIA
     Route: 048
     Dates: start: 20200323
  7. MIDAZOLAM. [Suspect]
     Active Substance: MIDAZOLAM
     Indication: SEDATIVE THERAPY
     Route: 042
     Dates: start: 20200323
  8. SUFENTANIL [Suspect]
     Active Substance: SUFENTANIL
     Indication: SEDATIVE THERAPY
     Route: 042
     Dates: start: 20200323
  9. CEFTRIAXONE. [Suspect]
     Active Substance: CEFTRIAXONE
     Indication: COVID-19 PNEUMONIA
     Route: 042
     Dates: start: 20200321, end: 20200326
  10. NOREPINEPHRINE BITARTRATE. [Suspect]
     Active Substance: NOREPINEPHRINE BITARTRATE
     Indication: SEPSIS
     Route: 042
  11. AMIKACIN. [Suspect]
     Active Substance: AMIKACIN
     Indication: SEPTIC SHOCK
     Route: 042
     Dates: start: 20200326
  12. LINEZOLID. [Suspect]
     Active Substance: LINEZOLID
     Indication: SEPTIC SHOCK
     Route: 042
     Dates: start: 20200326, end: 20200326
  13. CISATRACURIUM. [Suspect]
     Active Substance: CISATRACURIUM
     Indication: SEDATIVE THERAPY
     Route: 042
     Dates: start: 20200323
  14. MYFORTIC [Suspect]
     Active Substance: MYCOPHENOLATE SODIUM
     Indication: TRANSPLANT
     Route: 048
     Dates: start: 20200323, end: 20200323
  15. INIPOMP [Suspect]
     Active Substance: PANTOPRAZOLE SODIUM
     Indication: PRODUCT USED FOR UNKNOWN INDICATION
     Route: 048
  16. RAMIPRIL. [Suspect]
     Active Substance: RAMIPRIL
     Indication: HYPERTENSION
     Route: 048
     Dates: end: 20200323
  17. CORDARONE [Suspect]
     Active Substance: AMIODARONE HYDROCHLORIDE
     Indication: ATRIAL FIBRILLATION
     Route: 042
  18. CREON [Suspect]
     Active Substance: PANCRELIPASE AMYLASE\PANCRELIPASE LIPASE\PANCRELIPASE PROTEASE
     Indication: PANCREATIC FAILURE
     Dosage: GASTRO?RESISTANT GRANULES IN CAPSULE FORM
     Route: 048
  19. PANTOPRAZOLE [Suspect]
     Active Substance: PANTOPRAZOLE
     Indication: PRODUCT USED FOR UNKNOWN INDICATION
     Route: 042
  20. ROVAMYCINE [Suspect]
     Active Substance: SPIRAMYCIN
     Indication: COVID-19 PNEUMONIA
     Route: 042
     Dates: start: 20200321, end: 20200326
  21. CALCIPARINE [Suspect]
     Active Substance: HEPARIN CALCIUM
     Indication: THROMBOSIS PROPHYLAXIS
     Route: 058
  22. PREDNISOLONE. [Suspect]
     Active Substance: PREDNISOLONE
     Indication: PROPHYLAXIS AGAINST TRANSPLANT REJECTION
     Route: 048
  23. PIPERACILLIN SODIUM;TAZOBACTAM SODIUM [Suspect]
     Active Substance: PIPERACILLIN SODIUM\TAZOBACTAM SODIUM
     Indication: SEPTIC SHOCK
     Route: 042
     Dates: start: 20200326, end: 20200326
  24. CREON [Suspect]
     Active Substance: PANCRELIPASE AMYLASE\PANCRELIPASE LIPASE\PANCRELIPASE PROTEASE
     Indication: PANCREATIC FAILURE
     Route: 048
  25. FLUCORTAC [Suspect]
     Active Substance: FLUDROCORTISONE ACETATE
     Indication: PRODUCT SUBSTITUTION
     Route: 042
     Dates: start: 20200326

REACTIONS (7)
  - Septic shock [Fatal]
  - Off label use [Unknown]
  - Respiratory distress [Fatal]
  - COVID-19 pneumonia [Fatal]
  - COVID-19 [Fatal]
  - Rhabdomyolysis [Unknown]
  - Hypertransaminasaemia [Unknown]

NARRATIVE: CASE EVENT DATE: 20200309
